FAERS Safety Report 22699736 (Version 2)
Quarter: 2023Q4

REPORT INFORMATION
  Report Type: Spontaneous
  Country: JP (occurrence: JP)
  Receive Date: 20230713
  Receipt Date: 20231208
  Transmission Date: 20240110
  Serious: Yes (Death, Life-Threatening, Hospitalization, Other)
  Sender: FDA-Public Use
  Company Number: JP-TAKEDA-2023TJP009004

PATIENT
  Age: 67 Year
  Sex: Male

DRUGS (2)
  1. NIVOLUMAB [Suspect]
     Active Substance: NIVOLUMAB
     Indication: Product used for unknown indication
     Dosage: UNK
  2. CABOMETYX [Suspect]
     Active Substance: CABOZANTINIB S-MALATE
     Indication: Renal cell carcinoma
     Dosage: 40 MG, QD
     Route: 048

REACTIONS (4)
  - Interstitial lung disease [Recovering/Resolving]
  - Malignant neoplasm progression [Fatal]
  - Hepatic function abnormal [Recovered/Resolved]
  - Hypertension [Recovered/Resolved]
